FAERS Safety Report 8919764 (Version 3)
Quarter: 2013Q2

REPORT INFORMATION
  Report Type: Spontaneous
  Country: US (occurrence: US)
  Receive Date: 20121121
  Receipt Date: 20130618
  Transmission Date: 20140414
  Serious: Yes (Other)
  Sender: FDA-Public Use
  Company Number: US-BAYER-2012-120799

PATIENT
  Age: 20 Year
  Sex: Female
  Weight: 80.73 kg

DRUGS (3)
  1. YAZ [Suspect]
     Indication: CONTRACEPTION
     Dosage: UNK
     Dates: start: 20081220, end: 200904
  2. IBUPROFEN [Concomitant]
  3. PROPOXYPHENE NAPSYLATE W/ACETAMINOPHENE [Concomitant]

REACTIONS (13)
  - Retinal haemorrhage [None]
  - Retinal vein thrombosis [None]
  - Injury [None]
  - Pain [None]
  - Emotional distress [None]
  - General physical health deterioration [None]
  - Anxiety [None]
  - Pain [None]
  - Retinopathy [None]
  - Blindness unilateral [None]
  - Headache [None]
  - Hypoxia [None]
  - Scar [None]
